FAERS Safety Report 8049907-7 (Version None)
Quarter: 2012Q1

REPORT INFORMATION
  Report Type: 
  Country: None (occurrence: None)
  Receive Date: 20120117
  Receipt Date: 20120111
  Transmission Date: 20120608
  Serious: No
  Sender: FDA-Public Use
  Company Number: US-PFIZER INC-2012008618

PATIENT
  Sex: Male

DRUGS (1)
  1. IBUPROFEN (ADVIL) [Suspect]
     Indication: TOOTHACHE
     Dosage: UNK, 3 TABLETS DAILY
     Route: 048
     Dates: start: 20120111

REACTIONS (4)
  - INCORRECT DOSE ADMINISTERED [None]
  - DYSPEPSIA [None]
  - ABDOMINAL PAIN UPPER [None]
  - NAUSEA [None]
